FAERS Safety Report 7233392-9 (Version None)
Quarter: 2011Q1

REPORT INFORMATION
  Report Type: 
  Country: None (occurrence: None)
  Receive Date: 20110107
  Receipt Date: 20101223
  Transmission Date: 20110831
  Serious: Yes (Life-Threatening, Hospitalization, Disabling)
  Sender: FDA-Public Use
  Company Number: THQ2009A04806

PATIENT
  Age: 63 Year
  Sex: Male

DRUGS (6)
  1. RABEPRAZOLE SODIUM [Suspect]
  2. LANSOPRAZOLE [Suspect]
     Dates: start: 20060725, end: 20060808
  3. LOSEC (OMEPRAZOLE) [Suspect]
     Indication: GASTROOESOPHAGEAL REFLUX DISEASE
     Dosage: 40 MG PER ORAL, PER ORAL
     Route: 048
     Dates: start: 20020101, end: 20060501
  4. LOSEC (OMEPRAZOLE) [Suspect]
     Indication: GASTROOESOPHAGEAL REFLUX DISEASE
     Dosage: 40 MG PER ORAL, PER ORAL
     Route: 048
     Dates: start: 20060601
  5. PANTOPRAZOLE SODIUM [Suspect]
     Indication: GASTROOESOPHAGEAL REFLUX DISEASE
  6. OMEPRAZOLE [Suspect]
     Dosage: INTRAVENOUS
     Route: 042
     Dates: start: 20050505, end: 20060617

REACTIONS (4)
  - HYPOMAGNESAEMIA [None]
  - TETANY [None]
  - HYPOCALCAEMIA [None]
  - HYPOPARATHYROIDISM SECONDARY [None]
